FAERS Safety Report 6448381-1 (Version None)
Quarter: 2009Q4

REPORT INFORMATION
  Report Type: 
  Country: None (occurrence: None)
  Receive Date: 20091120
  Receipt Date: 20091109
  Transmission Date: 20100525
  Serious: Yes (Other)
  Sender: FDA-Public Use
  Company Number: PHHY2009JP49334

PATIENT
  Age: 31 Year
  Sex: Male

DRUGS (2)
  1. TEGRETOL [Suspect]
     Indication: SCHIZOPHRENIA
     Dosage: 200 MG, DAILY
     Route: 048
  2. OLANZAPINE [Interacting]
     Indication: SCHIZOPHRENIA
     Dosage: 20 MG, DAILY
     Route: 048

REACTIONS (4)
  - DRUG INTERACTION [None]
  - PERSECUTORY DELUSION [None]
  - PSYCHIATRIC SYMPTOM [None]
  - THERAPEUTIC RESPONSE DECREASED [None]
